FAERS Safety Report 24566724 (Version 2)
Quarter: 2024Q4

REPORT INFORMATION
  Report Type: Other
  Country: JP (occurrence: JP)
  Receive Date: 20241030
  Receipt Date: 20241115
  Transmission Date: 20250114
  Serious: Yes (Hospitalization, Other)
  Sender: EMD SERONO INC
  Company Number: JP-Merck Healthcare KGaA-2024056501

PATIENT
  Age: 90 Year
  Sex: Female

DRUGS (1)
  1. METGLUCO [Suspect]
     Active Substance: METFORMIN HYDROCHLORIDE
     Indication: Product used for unknown indication
     Route: 048

REACTIONS (5)
  - Acute kidney injury [Recovering/Resolving]
  - Enteritis [Unknown]
  - Intestinal ischaemia [Unknown]
  - Hypoglycaemic unconsciousness [Unknown]
  - Lactic acidosis [Recovering/Resolving]
